FAERS Safety Report 24570583 (Version 1)
Quarter: 2024Q4

REPORT INFORMATION
  Report Type: Spontaneous
  Country: US (occurrence: US)
  Receive Date: 20241031
  Receipt Date: 20241031
  Transmission Date: 20250114
  Serious: No
  Sender: LUNDBECK
  Company Number: US-LUNDBECK-DKLU4004921

PATIENT

DRUGS (1)
  1. NORTHERA [Suspect]
     Active Substance: DROXIDOPA
     Indication: Neurodegenerative disorder
     Dosage: 100 MILLIGRAM
     Route: 048
     Dates: start: 202405

REACTIONS (1)
  - Adverse event [Unknown]
